FAERS Safety Report 4606626-4 (Version None)
Quarter: 2005Q2

REPORT INFORMATION
  Report Type: 
  Country: None (occurrence: None)
  Receive Date: 20050223
  Receipt Date: 20040415
  Transmission Date: 20051028
  Serious: Yes (Disabling)
  Sender: FDA-Public Use
  Company Number: WAES 0404USA01580

PATIENT
  Age: 71 Year
  Sex: Female

DRUGS (8)
  1. ZOCOR [Suspect]
     Indication: BLOOD CHOLESTEROL INCREASED
     Dosage: 20 MG/DAILY/PO
     Route: 048
     Dates: start: 20040101, end: 20040414
  2. CARDIZEM [Concomitant]
  3. ELAVIL [Concomitant]
  4. K-DUR 10 [Concomitant]
  5. TOPROL-XL [Concomitant]
  6. HYDROCHLOROTHIAZIDE [Concomitant]
  7. MECLIZINE [Concomitant]
  8. METHAZOLAMIDE [Concomitant]

REACTIONS (1)
  - ASTHENIA [None]
